FAERS Safety Report 15855303 (Version 3)
Quarter: 2019Q4

REPORT INFORMATION
  Report Type: Report from Study
  Country: US (occurrence: US)
  Receive Date: 20190122
  Receipt Date: 20191221
  Transmission Date: 20200122
  Serious: No
  Sender: FDA-Public Use
  Company Number: PHEH2019US002860

PATIENT
  Sex: Female

DRUGS (1)
  1. ENTRESTO [Suspect]
     Active Substance: SACUBITRIL\VALSARTAN
     Indication: CARDIAC FAILURE
     Dosage: UNK
     Route: 048

REACTIONS (7)
  - Inappropriate schedule of product administration [Unknown]
  - Asthenia [Unknown]
  - Hypotension [Unknown]
  - Pleural effusion [Unknown]
  - Insomnia [Unknown]
  - Dyspnoea [Unknown]
  - Cardiac disorder [Unknown]
